FAERS Safety Report 19001535 (Version 2)
Quarter: 2021Q1

REPORT INFORMATION
  Report Type: Spontaneous
  Country: US (occurrence: US)
  Receive Date: 20210312
  Receipt Date: 20210315
  Transmission Date: 20210420
  Serious: No
  Sender: FDA-Public Use
  Company Number: US-FARMAPROD-202008-1064

PATIENT
  Age: 65 Year
  Sex: Female

DRUGS (1)
  1. OXERVATE [Suspect]
     Active Substance: CENEGERMIN-BKBJ
     Indication: SJOGREN^S SYNDROME
     Route: 047
     Dates: start: 20200728

REACTIONS (6)
  - Eye pain [Unknown]
  - Eye irritation [Recovering/Resolving]
  - Off label use [Unknown]
  - Sinus congestion [Unknown]
  - Product administration error [Unknown]
  - Migraine [Unknown]

NARRATIVE: CASE EVENT DATE: 20200917
